FAERS Safety Report 15538678 (Version 1)
Quarter: 2018Q4

REPORT INFORMATION
  Report Type: Spontaneous
  Country: US (occurrence: US)
  Receive Date: 20181022
  Receipt Date: 20181022
  Transmission Date: 20190205
  Serious: No
  Sender: FDA-Public Use
  Company Number: US-GLAXOSMITHKLINE-US2018185162

PATIENT
  Age: 46 Year
  Sex: Female

DRUGS (3)
  1. PREVACID 24 HR [Suspect]
     Active Substance: LANSOPRAZOLE
     Dosage: UNK
  2. GAVISCON [Suspect]
     Active Substance: ALUMINUM HYDROXIDE\MAGNESIUM CARBONATE
     Indication: GASTROOESOPHAGEAL REFLUX DISEASE
     Dosage: UNK
  3. PREVACID 24 HR [Suspect]
     Active Substance: LANSOPRAZOLE
     Indication: GASTROOESOPHAGEAL REFLUX DISEASE
     Dosage: 2 DF, QD
     Dates: end: 20181008

REACTIONS (11)
  - Overdose [Unknown]
  - Drug ineffective [Unknown]
  - Headache [Not Recovered/Not Resolved]
  - Upper-airway cough syndrome [Unknown]
  - Sinus headache [Unknown]
  - Adverse drug reaction [Unknown]
  - Fatigue [Unknown]
  - Recalled product administered [Unknown]
  - Ocular discomfort [Unknown]
  - Product used for unknown indication [Unknown]
  - Maternal exposure during breast feeding [Unknown]
